FAERS Safety Report 8066950-2 (Version None)
Quarter: 2012Q1

REPORT INFORMATION
  Report Type: 
  Country: None (occurrence: None)
  Receive Date: 20120124
  Receipt Date: 20120117
  Transmission Date: 20120608
  Serious: Yes (Hospitalization)
  Sender: FDA-Public Use
  Company Number: ES-MERCK-1201ESP00014

PATIENT
  Age: 70 Year
  Sex: Female

DRUGS (7)
  1. ESOMEPRAZOLE [Concomitant]
     Route: 048
  2. CALCIUM CARBONATE AND CHOLECALCIFEROL [Concomitant]
     Route: 065
  3. TRANDOLAPRIL AND VERAPAMIL HYDROCHLORIDE [Concomitant]
     Route: 048
  4. LEFLUNOMIDE [Concomitant]
     Route: 048
  5. HALAZEPAM [Concomitant]
     Route: 048
  6. FOSAMAX [Suspect]
     Route: 048
  7. DEFLAZACORT [Suspect]
     Route: 048

REACTIONS (2)
  - OSTEONECROSIS OF JAW [None]
  - CELLULITIS [None]
